FAERS Safety Report 9147896 (Version 2)
Quarter: 2013Q1

REPORT INFORMATION
  Report Type: Spontaneous
  Country: DK (occurrence: DK)
  Receive Date: 20130307
  Receipt Date: 20130312
  Transmission Date: 20140127
  Serious: Yes (Hospitalization, Other)
  Sender: FDA-Public Use
  Company Number: DK-TEVA-388487ISR

PATIENT
  Age: 22 Year
  Sex: Female

DRUGS (9)
  1. OLANZAPINE [Suspect]
  2. OLANZAPINE [Suspect]
  3. ZYPREXA [Suspect]
     Dosage: DOSAGE FORM: UNSPECIFIED, 10-15 AS PER NECESSARY
     Route: 065
  4. XEPLION [Concomitant]
     Indication: SCHIZOPHRENIA, DISORGANISED TYPE
     Dosage: 50 MG, UNK
     Route: 030
     Dates: start: 20120605
  5. XEPLION [Concomitant]
     Dosage: 75 MG, UNK
     Route: 030
     Dates: start: 20120626
  6. XEPLION [Concomitant]
     Dosage: 75 MG, UNK
     Route: 030
     Dates: start: 20120725
  7. XEPLION [Concomitant]
     Route: 030
     Dates: start: 20120816
  8. RISPERDAL CONSTA [Concomitant]
     Dosage: 25 MG, UNK
     Route: 030
     Dates: start: 20120910
  9. RISPERDAL CONSTA [Concomitant]
     Dosage: 25 MG, UNK
     Route: 030
     Dates: start: 20120202, end: 20120522

REACTIONS (4)
  - Suicidal ideation [Recovered/Resolved]
  - Hallucination [Recovering/Resolving]
  - Persecutory delusion [Recovering/Resolving]
  - Psychotic disorder [Unknown]
